FAERS Safety Report 8992702 (Version 2)
Quarter: 2013Q1

REPORT INFORMATION
  Report Type: Spontaneous
  Country: US (occurrence: US)
  Receive Date: 20130101
  Receipt Date: 20130212
  Transmission Date: 20140127
  Serious: Yes (Death, Hospitalization)
  Sender: FDA-Public Use
  Company Number: US-ROCHE-1174685

PATIENT
  Age: 82 Year
  Sex: Female
  Weight: 70.37 kg

DRUGS (20)
  1. ACTEMRA [Suspect]
     Indication: RHEUMATOID ARTHRITIS
     Route: 042
     Dates: start: 20110524
  2. ACTEMRA [Suspect]
     Route: 042
     Dates: start: 20120709
  3. ACTEMRA [Suspect]
     Route: 042
     Dates: start: 20120918
  4. ACTEMRA [Suspect]
     Route: 042
     Dates: start: 20121018
  5. ACTEMRA [Suspect]
     Route: 042
     Dates: start: 20121120
  6. LOSARTAN [Concomitant]
     Route: 065
  7. SPIRONOLACTONE [Concomitant]
     Route: 065
  8. AMIODARONE [Concomitant]
     Route: 065
  9. WARFARIN [Concomitant]
  10. NAFCILLIN [Concomitant]
  11. COUMADIN [Concomitant]
  12. LEVAQUIN [Concomitant]
  13. METRONIDAZOLE [Concomitant]
  14. TRAMADOL [Concomitant]
  15. MORPHINE [Concomitant]
  16. DOXYCYCLINE CALCIUM [Concomitant]
     Dosage: 100
     Route: 065
  17. LACTULOSE [Concomitant]
     Route: 065
  18. DULCOLAX SUPPOSITORY [Concomitant]
  19. MS CONTIN [Concomitant]
     Dosage: 15
     Route: 065
  20. COLACE [Concomitant]
     Dosage: 250
     Route: 065

REACTIONS (2)
  - Death [Fatal]
  - Device related infection [Unknown]
